FAERS Safety Report 23357970 (Version 1)
Quarter: 2024Q1

REPORT INFORMATION
  Report Type: Spontaneous
  Country: US (occurrence: None)
  Receive Date: 20240101
  Receipt Date: 20240101
  Transmission Date: 20240409
  Serious: Yes (unspecified)
  Sender: FDA-Public Use
  Company Number: None

PATIENT
  Age: 74 Year
  Sex: Male
  Weight: 77 kg

DRUGS (2)
  1. YERVOY [Suspect]
     Active Substance: IPILIMUMAB
     Indication: Small cell lung cancer
     Route: 042
  2. OPDIVO [Suspect]
     Active Substance: NIVOLUMAB

REACTIONS (7)
  - Adverse drug reaction [None]
  - Rash pruritic [None]
  - Thirst [None]
  - Feeling cold [None]
  - Oedema peripheral [None]
  - Inadequate analgesia [None]
  - Product complaint [None]

NARRATIVE: CASE EVENT DATE: 20231115
